FAERS Safety Report 7701173-5 (Version None)
Quarter: 2011Q3

REPORT INFORMATION
  Report Type: 
  Country: None (occurrence: None)
  Receive Date: 20110822
  Receipt Date: 20110804
  Transmission Date: 20111222
  Serious: Yes (Congenital Anomaly)
  Sender: FDA-Public Use
  Company Number: US-GLAXOSMITHKLINE-A0699224A

PATIENT
  Sex: Male
  Weight: 4.3 kg

DRUGS (3)
  1. PRENATAL VITAMINS [Concomitant]
     Route: 064
  2. PAXIL [Suspect]
     Indication: DEPRESSION
     Route: 064
     Dates: start: 19960101, end: 19990101
  3. ZYRTEC [Concomitant]
     Route: 064

REACTIONS (7)
  - CONGENITAL ANOMALY [None]
  - MATERNAL EXPOSURE DURING PREGNANCY [None]
  - CONGENITAL FLAT FEET [None]
  - FLUID OVERLOAD [None]
  - RIGHT VENTRICULAR HYPERTROPHY [None]
  - ATRIAL SEPTAL DEFECT [None]
  - PLEURAL EFFUSION [None]
